FAERS Safety Report 18289044 (Version 9)
Quarter: 2021Q3

REPORT INFORMATION
  Report Type: Report from Study
  Country: US (occurrence: US)
  Receive Date: 20200921
  Receipt Date: 20210803
  Transmission Date: 20211014
  Serious: Yes (Hospitalization)
  Sender: FDA-Public Use
  Company Number: US-ROCHE-2670722

PATIENT
  Age: 71 Year
  Sex: Male
  Weight: 81 kg

DRUGS (16)
  1. CARVEDILOL. [Concomitant]
     Active Substance: CARVEDILOL
  2. ONDANSETRON [Concomitant]
     Active Substance: ONDANSETRON
  3. TIOTROPIUM [Concomitant]
     Active Substance: TIOTROPIUM
  4. GILTERITINIB [Suspect]
     Active Substance: GILTERITINIB
     Indication: ACUTE MYELOID LEUKAEMIA
     Dosage: CYCLE 1 DAY 5 ON 28/AUG/2020.
     Route: 048
     Dates: start: 20200824, end: 20200908
  5. ALLOPURINOL. [Concomitant]
     Active Substance: ALLOPURINOL
  6. GILTERITINIB [Suspect]
     Active Substance: GILTERITINIB
     Route: 048
     Dates: start: 20201006, end: 20201026
  7. GILTERITINIB [Suspect]
     Active Substance: GILTERITINIB
     Route: 048
     Dates: start: 20200929, end: 20200930
  8. ATEZOLIZUMAB. [Suspect]
     Active Substance: ATEZOLIZUMAB
     Indication: ACUTE MYELOID LEUKAEMIA
     Dosage: CYCLE 1 DAY 5 ON 28/AUG/2020.
     Route: 041
     Dates: start: 20200824, end: 20200908
  9. GILTERITINIB [Suspect]
     Active Substance: GILTERITINIB
     Route: 048
     Dates: start: 20200913, end: 20200925
  10. VITAMIN D3 [Concomitant]
     Active Substance: CHOLECALCIFEROL
  11. ACETAMINOPHEN. [Concomitant]
     Active Substance: ACETAMINOPHEN
  12. ACYCLOVIR. [Concomitant]
     Active Substance: ACYCLOVIR
  13. LATANOPROST. [Concomitant]
     Active Substance: LATANOPROST
  14. AMLODIPINE [Concomitant]
     Active Substance: AMLODIPINE BESYLATE
  15. VORICONAZOLE. [Concomitant]
     Active Substance: VORICONAZOLE
  16. ALBUTEROL. [Concomitant]
     Active Substance: ALBUTEROL

REACTIONS (7)
  - Pyrexia [Recovered/Resolved]
  - Muscular weakness [Recovering/Resolving]
  - Hypoxia [Recovered/Resolved]
  - Upper gastrointestinal haemorrhage [Recovered/Resolved]
  - Platelet count decreased [Recovered/Resolved]
  - Anaemia [Recovered/Resolved]
  - Febrile neutropenia [Not Recovered/Not Resolved]

NARRATIVE: CASE EVENT DATE: 20200828
